FAERS Safety Report 24225163 (Version 1)
Quarter: 2024Q3

REPORT INFORMATION
  Report Type: Other
  Country: PT (occurrence: PT)
  Receive Date: 20240820
  Receipt Date: 20240820
  Transmission Date: 20241016
  Serious: Yes (Life-Threatening, Hospitalization)
  Sender: MACLEODS
  Company Number: None

PATIENT

DRUGS (4)
  1. ESCITALOPRAM [Suspect]
     Active Substance: ESCITALOPRAM OXALATE
     Indication: Depression
     Dosage: VOLUNTARY DRUG INTAKE
     Route: 048
     Dates: start: 20240728, end: 20240728
  2. ESCITALOPRAM [Suspect]
     Active Substance: ESCITALOPRAM OXALATE
     Route: 048
     Dates: start: 20240711
  3. BISOPROLOL [Suspect]
     Active Substance: BISOPROLOL\BISOPROLOL FUMARATE
     Indication: Product used for unknown indication
     Dosage: IMV (VOLUNTARY DRUG INTAKE)
     Route: 048
     Dates: start: 20240728, end: 20240728
  4. AMLODIPINE BESYLATE\INDAPAMIDE\PERINDOPRIL ARGININE [Suspect]
     Active Substance: AMLODIPINE BESYLATE\INDAPAMIDE\PERINDOPRIL ARGININE
     Indication: Product used for unknown indication
     Route: 048
     Dates: start: 20240728, end: 20240728

REACTIONS (6)
  - Suicide attempt [Unknown]
  - Distributive shock [Recovering/Resolving]
  - Cardiovascular disorder [Recovering/Resolving]
  - Respiratory failure [Unknown]
  - Nervous system disorder [Recovering/Resolving]
  - Renal disorder [Recovering/Resolving]

NARRATIVE: CASE EVENT DATE: 20240728
